FAERS Safety Report 5926690-X (Version None)
Quarter: 2008Q4

REPORT INFORMATION
  Report Type: 
  Country: None (occurrence: None)
  Receive Date: 20081017
  Receipt Date: 20081001
  Transmission Date: 20090506
  Serious: Yes (Life-Threatening, Hospitalization, Other)
  Sender: FDA-Public Use
  Company Number: 2008AL011049

PATIENT
  Sex: Female

DRUGS (4)
  1. RAMIPRIL [Suspect]
     Indication: HYPERTENSION
  2. DICLOFENAC SODIUM [Suspect]
     Dosage: X1; PO
     Route: 048
  3. LEVOTHYROXINE SODIUM [Concomitant]
  4. HORMONE REPLACEMENT THERAPY [Concomitant]

REACTIONS (1)
  - SHOCK [None]
